FAERS Safety Report 7487709-0 (Version None)
Quarter: 2011Q2

REPORT INFORMATION
  Report Type: 
  Country: None (occurrence: None)
  Receive Date: 20110518
  Receipt Date: 20110505
  Transmission Date: 20111010
  Serious: Yes (Hospitalization)
  Sender: FDA-Public Use
  Company Number: PHHY2011DE20970

PATIENT
  Sex: Male
  Weight: 75 kg

DRUGS (1)
  1. EXTAVIA [Suspect]
     Indication: MULTIPLE SCLEROSIS
     Dosage: 250 MG, QOD
     Route: 058
     Dates: start: 20110224, end: 20110505

REACTIONS (4)
  - FAT NECROSIS [None]
  - HERPES ZOSTER [None]
  - SKIN SWELLING [None]
  - SKIN REACTION [None]
